FAERS Safety Report 15866572 (Version 1)
Quarter: 2019Q1

REPORT INFORMATION
  Report Type: Spontaneous
  Country: US (occurrence: US)
  Receive Date: 20190125
  Receipt Date: 20190125
  Transmission Date: 20190417
  Serious: No
  Sender: FDA-Public Use
  Company Number: US-TAKEDA-2019TUS001716

PATIENT

DRUGS (3)
  1. ENTYVIO [Suspect]
     Active Substance: VEDOLIZUMAB
     Indication: PRODUCT USED FOR UNKNOWN INDICATION
     Dosage: 300 MILLIGRAM
     Route: 042
  2. CELEBREX [Concomitant]
     Active Substance: CELECOXIB
     Dosage: UNK
     Route: 048
  3. BUDESONIDE. [Concomitant]
     Active Substance: BUDESONIDE
     Dosage: UNK
     Route: 048

REACTIONS (9)
  - White blood cell count increased [Unknown]
  - Abdominal distension [Unknown]
  - Monocyte count increased [Unknown]
  - Product dose omission [Unknown]
  - Arthritis [Unknown]
  - Neutrophil count increased [Unknown]
  - Rash [Unknown]
  - Diarrhoea [Unknown]
  - Feeling abnormal [Unknown]
